FAERS Safety Report 7398746-9 (Version None)
Quarter: 2011Q2

REPORT INFORMATION
  Report Type: 
  Country: None (occurrence: None)
  Receive Date: 20110401
  Receipt Date: 20110401
  Transmission Date: 20111010
  Serious: Yes (Other)
  Sender: FDA-Public Use
  Company Number: None

PATIENT
  Sex: Female
  Weight: 90.7194 kg

DRUGS (4)
  1. DULERA TABLET [Suspect]
     Indication: ASTHMA
     Dosage: 2 PUFFS 2X DAILY INHAL
     Route: 055
     Dates: start: 20110311, end: 20110327
  2. PULMICORT [Concomitant]
  3. XOPENEX [Concomitant]
  4. METHYPRED [Concomitant]

REACTIONS (3)
  - ASTHMA [None]
  - FATIGUE [None]
  - CONDITION AGGRAVATED [None]
